FAERS Safety Report 9298958 (Version 1)
Quarter: 2013Q2

REPORT INFORMATION
  Report Type: Spontaneous
  Country: US (occurrence: US)
  Receive Date: 20130520
  Receipt Date: 20130520
  Transmission Date: 20140414
  Serious: Yes (Hospitalization, Other)
  Sender: FDA-Public Use
  Company Number: US-SANOFI-AVENTIS-200618312US

PATIENT
  Age: 65 Year
  Sex: Male

DRUGS (10)
  1. INSULIN GLULISINE [Suspect]
     Indication: TYPE 2 DIABETES MELLITUS
     Dosage: DOSE AS USED: 9-15 UNITS WITH MEALS
     Route: 058
     Dates: start: 200607
  2. NAPROXEN [Suspect]
     Indication: TENDONITIS
     Dosage: DOSE AS USED: UNKNOWN
     Route: 048
     Dates: start: 200608, end: 20060901
  3. INSULIN DETEMIR [Concomitant]
     Dates: start: 200601
  4. COREG [Concomitant]
  5. LISINOPRIL [Concomitant]
  6. GLYBURIDE [Concomitant]
  7. FUROSEMIDE [Concomitant]
  8. WARFARIN [Concomitant]
  9. LIPITOR /UNK/ [Concomitant]
  10. TIOTROPIUM BROMIDE [Concomitant]

REACTIONS (8)
  - Hypoglycaemic coma [Recovered/Resolved]
  - Hypoglycaemia [Recovered/Resolved]
  - Drug effect increased [Recovered/Resolved]
  - Drug interaction [Recovered/Resolved]
  - Laceration [Recovered/Resolved]
  - Blood creatinine increased [Unknown]
  - Blood glucose decreased [Not Recovered/Not Resolved]
  - Blood glucose fluctuation [Not Recovered/Not Resolved]
